APPROVED DRUG PRODUCT: FLUPHENAZINE HYDROCHLORIDE
Active Ingredient: FLUPHENAZINE HYDROCHLORIDE
Strength: 10MG
Dosage Form/Route: TABLET;ORAL
Application: A089586 | Product #001
Applicant: SANDOZ INC
Approved: Oct 16, 1987 | RLD: No | RS: No | Type: DISCN